FAERS Safety Report 6785772-3 (Version None)
Quarter: 2010Q2

REPORT INFORMATION
  Report Type: 
  Country: None (occurrence: None)
  Receive Date: 20100622
  Receipt Date: 20100622
  Transmission Date: 20101027
  Serious: Yes (Other)
  Sender: FDA-Public Use
  Company Number: None

PATIENT
  Sex: Female
  Weight: 47.1741 kg

DRUGS (1)
  1. TOPIRAMATE [Suspect]
     Dosage: 400 MG A DAY DAILY

REACTIONS (13)
  - ACTIVITIES OF DAILY LIVING IMPAIRED [None]
  - AGEUSIA [None]
  - AGGRESSION [None]
  - APHASIA [None]
  - DYSARTHRIA [None]
  - EYE DISORDER [None]
  - EYE MOVEMENT DISORDER [None]
  - HYPOAESTHESIA FACIAL [None]
  - IMPAIRED WORK ABILITY [None]
  - MEMORY IMPAIRMENT [None]
  - MOOD ALTERED [None]
  - MUSCLE TWITCHING [None]
  - PRODUCT QUALITY ISSUE [None]
